FAERS Safety Report 4341794-3 (Version None)
Quarter: 2004Q2

REPORT INFORMATION
  Report Type: 
  Country: None (occurrence: None)
  Receive Date: 20040420
  Receipt Date: 20040128
  Transmission Date: 20050107
  Serious: Yes (Other)
  Sender: FDA-Public Use
  Company Number: US-GLAXOSMITHKLINE-A0495331A

PATIENT
  Age: 35 Year
  Sex: Female
  Weight: 64.5 kg

DRUGS (4)
  1. WELLBUTRIN [Suspect]
     Dosage: 150MG TWICE PER DAY
     Route: 048
     Dates: start: 20031110, end: 20040123
  2. PAXIL [Suspect]
     Route: 048
     Dates: start: 20021101, end: 20040114
  3. ATIVAN [Concomitant]
     Indication: SLEEP DISORDER
     Dosage: .5MG AT NIGHT
     Route: 048
  4. ZYRTEC [Concomitant]
     Indication: SINUSITIS
     Dosage: 10MG PER DAY
     Route: 048
     Dates: start: 20031101

REACTIONS (4)
  - FATIGUE [None]
  - MUSCLE CONTRACTIONS INVOLUNTARY [None]
  - PARTIAL SEIZURES [None]
  - TREMOR [None]
